FAERS Safety Report 8967902 (Version 1)
Quarter: 2012Q4

REPORT INFORMATION
  Report Type: 
  Country: US (occurrence: US)
  Receive Date: 20121218
  Receipt Date: 20121218
  Transmission Date: 20130627
  Serious: No
  Sender: FDA-Public Use
  Company Number: US-GLAXOSMITHKLINE-A0967174A

PATIENT
  Age: 85 Year
  Sex: Male

DRUGS (2)
  1. COREG CR [Suspect]
     Indication: HYPERTENSION
     Dosage: 10MG Per day
     Route: 048
     Dates: start: 2008
  2. STOOL SOFTENER [Concomitant]

REACTIONS (1)
  - Dyspepsia [Recovering/Resolving]
